FAERS Safety Report 7897704-5 (Version None)
Quarter: 2011Q4

REPORT INFORMATION
  Report Type: 
  Country: None (occurrence: None)
  Receive Date: 20111107
  Receipt Date: 20111103
  Transmission Date: 20120403
  Serious: Yes (Life-Threatening)
  Sender: FDA-Public Use
  Company Number: NZ-B.I. PHARMACEUTICALS,INC./RIDGEFIELD-2011-AU-02011AU

PATIENT
  Sex: Female

DRUGS (4)
  1. PRADAXA [Suspect]
     Dosage: 220 MG
     Route: 048
     Dates: start: 20110718, end: 20110720
  2. TAMOXIFEN CITRATE [Concomitant]
     Dosage: 20 MG
     Route: 048
  3. LEVOTHYROXINE SODIUM [Concomitant]
     Dosage: 200 MCG
     Route: 048
  4. METOPROLOL TARTRATE [Concomitant]
     Dosage: 23.75 MG
     Route: 048

REACTIONS (2)
  - INTERNATIONAL NORMALISED RATIO INCREASED [None]
  - MELAENA [None]
